FAERS Safety Report 19970049 (Version 1)
Quarter: 2021Q4

REPORT INFORMATION
  Report Type: Spontaneous
  Country: HR (occurrence: HR)
  Receive Date: 20211019
  Receipt Date: 20211019
  Transmission Date: 20220304
  Serious: Yes (Other)
  Sender: FDA-Public Use
  Company Number: None

PATIENT
  Age: 52 Year
  Sex: Female
  Weight: 75 kg

DRUGS (2)
  1. OCTREOTIDE ACETATE [Suspect]
     Active Substance: OCTREOTIDE ACETATE
     Indication: Neuroendocrine tumour
     Route: 030
     Dates: start: 20210811
  2. OCTREOTIDE ACETATE [Suspect]
     Active Substance: OCTREOTIDE ACETATE
     Indication: Neuroendocrine tumour
     Dosage: THE STRENGTH OF THE DRUG:20 + 30 MG?DOSAGE 50 MG,POWDER AND SOLVENT FOR PROLONGED-RELEASE SUSPENSION
     Route: 030
     Dates: start: 20210811

REACTIONS (13)
  - Cyanosis [Unknown]
  - Pyrexia [Unknown]
  - Vertigo [Unknown]
  - Application site macule [Unknown]
  - Pyrexia [Unknown]
  - Diarrhoea [Unknown]
  - Insomnia [Not Recovered/Not Resolved]
  - Application site discolouration [Unknown]
  - Application site erythema [Unknown]
  - Application site induration [Unknown]
  - Pain in extremity [Unknown]
  - Application site pain [Unknown]
  - Fatigue [Unknown]

NARRATIVE: CASE EVENT DATE: 20210811
